FAERS Safety Report 5229556-6 (Version None)
Quarter: 2007Q1

REPORT INFORMATION
  Report Type: 
  Country: None (occurrence: None)
  Receive Date: 20061201
  Receipt Date: 20060925
  Transmission Date: 20070707
  Serious: No
  Sender: FDA-Public Use
  Company Number: 2006PV021897

PATIENT
  Age: 62 Year
  Sex: Female
  Weight: 71.2147 kg

DRUGS (4)
  1. BYETTA [Suspect]
     Indication: DIABETES MELLITUS NON-INSULIN-DEPENDENT
     Dosage: SEE IMAGE
     Route: 058
     Dates: start: 20060601, end: 20060701
  2. BYETTA [Suspect]
     Indication: DIABETES MELLITUS NON-INSULIN-DEPENDENT
     Dosage: SEE IMAGE
     Route: 058
     Dates: start: 20060701, end: 20060922
  3. GLYBURIDE [Concomitant]
  4. METFORMIN HCL [Concomitant]

REACTIONS (5)
  - DIARRHOEA [None]
  - NAUSEA [None]
  - POLYP [None]
  - URTICARIA [None]
  - VOMITING [None]
